FAERS Safety Report 7071698-7 (Version None)
Quarter: 2010Q4

REPORT INFORMATION
  Report Type: 
  Country: None (occurrence: None)
  Receive Date: 20101029
  Receipt Date: 20091009
  Transmission Date: 20110411
  Serious: No
  Sender: FDA-Public Use
  Company Number: A0811072A

PATIENT
  Age: 22 Year
  Sex: Male

DRUGS (5)
  1. ADVAIR DISKUS 100/50 [Suspect]
     Dosage: 1PUFF TWICE PER DAY
     Route: 055
     Dates: start: 20080401, end: 20091007
  2. NEXIUM [Concomitant]
  3. CELEBREX [Concomitant]
  4. AZELASTINE HCL [Concomitant]
     Route: 045
  5. NASONEX [Concomitant]

REACTIONS (1)
  - ORAL CANDIDIASIS [None]
